FAERS Safety Report 6119782-6 (Version None)
Quarter: 2009Q1

REPORT INFORMATION
  Report Type: 
  Country: None (occurrence: None)
  Receive Date: 20090316
  Receipt Date: 20090303
  Transmission Date: 20090719
  Serious: Yes (Other)
  Sender: FDA-Public Use
  Company Number: JP-PFIZER INC-2009178820

PATIENT

DRUGS (4)
  1. VARENICLINE TARTRATE [Suspect]
     Dosage: 2 MG, UNK
     Route: 048
     Dates: start: 20090209
  2. LORCAM [Suspect]
     Indication: PAIN
     Dosage: 1 TABLET
     Route: 048
     Dates: start: 20090223
  3. HERBAL PREPARATION [Suspect]
     Indication: ILL-DEFINED DISORDER
     Route: 048
  4. GENERAL NUTRIENTS [Suspect]

REACTIONS (1)
  - DRUG ERUPTION [None]
